FAERS Safety Report 5956439-6 (Version None)
Quarter: 2008Q4

REPORT INFORMATION
  Report Type: 
  Country: None (occurrence: None)
  Receive Date: 20081118
  Receipt Date: 20081114
  Transmission Date: 20090506
  Serious: Yes (Hospitalization)
  Sender: FDA-Public Use
  Company Number: US-EISAI MEDICAL RESEARCH-E2020-03697-SPO-US

PATIENT
  Age: 72 Year
  Sex: Male

DRUGS (2)
  1. ARICEPT [Suspect]
     Indication: DRUG USE FOR UNKNOWN INDICATION
     Route: 048
     Dates: start: 20080101, end: 20080622
  2. ARICEPT [Suspect]
     Route: 048
     Dates: start: 20080623

REACTIONS (1)
  - LARGE INTESTINE PERFORATION [None]
